FAERS Safety Report 9232087 (Version 2)
Quarter: 2013Q2

REPORT INFORMATION
  Report Type: Spontaneous
  Country: US (occurrence: US)
  Receive Date: 20130415
  Receipt Date: 20130606
  Transmission Date: 20140414
  Serious: No
  Sender: FDA-Public Use
  Company Number: US-PFIZER INC-2013113755

PATIENT
  Age: 48 Year
  Sex: Male
  Weight: 103 kg

DRUGS (3)
  1. DEPO-TESTOSTERONE [Suspect]
     Indication: BLOOD TESTOSTERONE DECREASED
     Dosage: 75 ML, WEEKLY
     Dates: start: 201209
  2. CLONAZEPAM [Concomitant]
     Indication: SLEEP DISORDER
     Dosage: 5 MG, AS NEEDED
  3. CLONAZEPAM [Concomitant]
     Indication: FEELING OF RELAXATION

REACTIONS (3)
  - Blood oestrogen increased [Unknown]
  - Product deposit [Unknown]
  - Drug ineffective [Unknown]
